FAERS Safety Report 4778350-9 (Version None)
Quarter: 2005Q3

REPORT INFORMATION
  Report Type: 
  Country: None (occurrence: None)
  Receive Date: 20050922
  Receipt Date: 20050912
  Transmission Date: 20060218
  Serious: Yes (Hospitalization)
  Sender: FDA-Public Use
  Company Number: 12343

PATIENT
  Age: 60 Year
  Sex: Female

DRUGS (15)
  1. LEUCOVORIN [Suspect]
     Indication: COLON CANCER STAGE III
     Dosage: 400 MG/M2 ONCE IV
     Route: 042
     Dates: start: 20050404, end: 20050404
  2. LEUCOVORIN [Suspect]
     Indication: COLON CANCER STAGE III
     Dosage: 800 MG ONCE IV
     Route: 042
     Dates: start: 20050808, end: 20050808
  3. FLUOROURACIL [Suspect]
     Indication: COLON CANCER STAGE III
     Dosage: 400 MG/M2 ONCE IV
     Route: 042
     Dates: start: 20050404, end: 20050404
  4. FLUOROURACIL [Suspect]
     Indication: COLON CANCER STAGE III
     Dosage: 2400 MG/M2 PER_CYCLE IV
     Route: 042
     Dates: start: 20050404, end: 20050404
  5. FLUOROURACIL [Suspect]
     Indication: COLON CANCER STAGE III
     Dosage: 5600 MG ONCE IV
     Route: 042
     Dates: start: 20050808, end: 20050808
  6. CETUXIMAB [Suspect]
     Indication: COLON CANCER STAGE III
     Dosage: 400 MG/M2 ONCE IV
     Route: 042
     Dates: start: 20050411, end: 20050411
  7. OXALIPLATIN [Suspect]
     Indication: COLON CANCER STAGE III
     Dosage: 85 MG/M2 ONCE IV
     Route: 042
     Dates: start: 20050404, end: 20050404
  8. OXALIPLATIN [Suspect]
     Indication: COLON CANCER STAGE III
     Dosage: 100 MG ONCE IV
     Route: 042
     Dates: start: 20050808, end: 20050808
  9. NEURONTIN [Suspect]
  10. PROTONIX [Suspect]
  11. VALTREX [Suspect]
  12. WELLBUTRIN [Suspect]
  13. ZOLOFT [Suspect]
  14. ATIVAN [Concomitant]
  15. COMPAZINE [Concomitant]

REACTIONS (5)
  - HAEMATOCHEZIA [None]
  - HAEMOGLOBIN DECREASED [None]
  - HAEMORRHOIDS [None]
  - NEUROPATHY [None]
  - PLATELET COUNT DECREASED [None]
